FAERS Safety Report 7679712-2 (Version None)
Quarter: 2011Q3

REPORT INFORMATION
  Report Type: 
  Country: None (occurrence: None)
  Receive Date: 20110812
  Receipt Date: 20110808
  Transmission Date: 20111222
  Serious: Yes (Other)
  Sender: FDA-Public Use
  Company Number: US-CEPHALON-US018570

PATIENT
  Age: 79 Year
  Sex: Male

DRUGS (15)
  1. WELLBUTRIN XL [Concomitant]
     Indication: DEPRESSION
     Route: 065
  2. FOLIC ACID [Concomitant]
  3. LIPITOR [Concomitant]
     Route: 065
  4. PROVIGIL [Suspect]
     Indication: SLEEP APNOEA SYNDROME
     Route: 048
     Dates: end: 20061013
  5. SINEMET [Concomitant]
     Indication: SLEEP DISORDER
     Dosage: 25/100 Q2HRS
     Route: 065
  6. FUROSEMIDE [Concomitant]
     Route: 065
  7. PREDNISONE [Concomitant]
     Route: 065
  8. DIGOXIN [Concomitant]
     Route: 065
  9. PREVACID [Concomitant]
     Route: 065
  10. ASPIRIN [Concomitant]
     Route: 065
  11. REQUIP [Concomitant]
     Route: 065
  12. AMIODARONE HCL [Concomitant]
     Route: 065
  13. VITAMIN B-12 [Concomitant]
  14. FLOMAX [Concomitant]
     Route: 065
  15. METHOTREXATE [Concomitant]
     Route: 065

REACTIONS (2)
  - ATRIAL FIBRILLATION [None]
  - AGGRESSION [None]
